FAERS Safety Report 14409885 (Version 3)
Quarter: 2018Q1

REPORT INFORMATION
  Report Type: Spontaneous
  Country: ES (occurrence: ES)
  Receive Date: 20180119
  Receipt Date: 20180320
  Transmission Date: 20180509
  Serious: Yes (Hospitalization, Other)
  Sender: FDA-Public Use
  Company Number: ES-AMGEN-ESPSP2018006069

PATIENT
  Age: 53 Year
  Sex: Female
  Weight: 68.6 kg

DRUGS (16)
  1. ADIRO [Concomitant]
     Active Substance: ASPIRIN
     Dosage: 100 MG, UNK
     Route: 048
     Dates: start: 20150601
  2. KYPROLIS [Suspect]
     Active Substance: CARFILZOMIB
     Indication: PLASMA CELL MYELOMA
     Dosage: 1.95 MG/M2, (40 MG/DAY OF TREATMENT (CYCLE 1, DAYS 1 AND 2)
     Route: 065
     Dates: start: 20171108
  3. DENOSUMAB [Concomitant]
     Active Substance: DENOSUMAB
     Indication: PLASMA CELL MYELOMA
     Dosage: 1.7 ML, UNK
     Dates: start: 20121016, end: 20170104
  4. DEXAMETASONA [Concomitant]
     Active Substance: DEXAMETHASONE
     Dosage: UNK
     Dates: start: 20171108
  5. OSTINE [Concomitant]
     Dosage: 1 DF, UNK
     Route: 048
     Dates: start: 20140305
  6. ALPRAZOLAM. [Concomitant]
     Active Substance: ALPRAZOLAM
     Dosage: 0.25 MG, UNK
     Route: 048
     Dates: start: 20130628
  7. ODENIL [Concomitant]
     Dosage: 1 DF, UNK
     Route: 061
     Dates: start: 20140128
  8. ARANESP [Concomitant]
     Active Substance: DARBEPOETIN ALFA
     Dosage: 150 MUG, UNK
     Route: 058
     Dates: start: 20150109
  9. METAMIZOL [Concomitant]
     Active Substance: METAMIZOLE SODIUM
     Dosage: 575 MG, UNK
     Route: 048
     Dates: start: 20171127
  10. DEXAMETASONA [Concomitant]
     Active Substance: DEXAMETHASONE
     Dosage: 40 UNK, QWK
     Dates: start: 20150201, end: 20171016
  11. LEXATIN [Concomitant]
     Dosage: 1.5 MG, UNK
     Route: 048
     Dates: start: 20121018
  12. LORMETAZEPAM [Concomitant]
     Active Substance: LORMETAZEPAM
     Dosage: 2 MG, UNK
     Route: 048
     Dates: start: 20130603
  13. PANTOPRAZOL [Concomitant]
     Active Substance: PANTOPRAZOLE SODIUM
     Dosage: 40 MG, UNK
     Route: 048
     Dates: start: 20130327
  14. KYPROLIS [Suspect]
     Active Substance: CARFILZOMIB
     Dosage: 1.95 MG/M2,110 MG/DAY OF TREATMENT
     Route: 065
  15. PARACETAMOL [Concomitant]
     Active Substance: ACETAMINOPHEN
     Dosage: 1 G, UNK
     Route: 048
     Dates: start: 20130604
  16. DENOSUMAB [Concomitant]
     Active Substance: DENOSUMAB
     Dosage: 1.7 ML, UNK
     Dates: start: 20170201, end: 20171205

REACTIONS (4)
  - Chest pain [Unknown]
  - Heart rate increased [Unknown]
  - Syncope [Unknown]
  - Palpitations [Recovered/Resolved]

NARRATIVE: CASE EVENT DATE: 201712
